FAERS Safety Report 9479377 (Version 1)
Quarter: 2013Q3

REPORT INFORMATION
  Report Type: Spontaneous
  Country: US (occurrence: US)
  Receive Date: 20130827
  Receipt Date: 20130827
  Transmission Date: 20140515
  Serious: No
  Sender: FDA-Public Use
  Company Number: US-PFIZER INC-2013245789

PATIENT
  Age: 85 Year
  Sex: Female
  Weight: 49.89 kg

DRUGS (4)
  1. LIPITOR [Suspect]
     Dosage: UNK
  2. ATORVASTATIN CALCIUM [Suspect]
     Dosage: 20 MG, 1X/DAY
     Dates: start: 2013
  3. METOPROLOL [Concomitant]
     Indication: HYPOTENSION
     Dosage: UNK
  4. SYNTHROID [Concomitant]
     Indication: THYROID DISORDER
     Dosage: UNK

REACTIONS (3)
  - Hypertension [Unknown]
  - Body height decreased [Unknown]
  - Constipation [Unknown]
